FAERS Safety Report 6998770-1 (Version None)
Quarter: 2010Q3

REPORT INFORMATION
  Report Type: 
  Country: None (occurrence: None)
  Receive Date: 20100920
  Receipt Date: 20100423
  Transmission Date: 20110219
  Serious: No
  Sender: FDA-Public Use
  Company Number: US-ASTRAZENECA-2010SE18408

PATIENT
  Sex: Male

DRUGS (5)
  1. QUETIAPINE [Suspect]
     Route: 048
     Dates: end: 20100302
  2. DIVALPROEX SODIUM [Suspect]
     Indication: BIPOLAR DISORDER
     Route: 048
  3. DIVALPROEX SODIUM [Suspect]
     Route: 048
  4. DIVALPROEX SODIUM [Suspect]
     Route: 048
  5. ESCITALOPRAM OXALATE [Concomitant]

REACTIONS (6)
  - ABDOMINAL DISCOMFORT [None]
  - DRY MOUTH [None]
  - HALO VISION [None]
  - MENTAL IMPAIRMENT [None]
  - SENSORY DISTURBANCE [None]
  - VISION BLURRED [None]
